FAERS Safety Report 5065501-4 (Version None)
Quarter: 2006Q3

REPORT INFORMATION
  Report Type: 
  Country: None (occurrence: None)
  Receive Date: 20060725
  Receipt Date: 20060712
  Transmission Date: 20061208
  Serious: Yes (Other)
  Sender: FDA-Public Use
  Company Number: 2006-BP-08016RO

PATIENT
  Age: 50 Year
  Sex: Male

DRUGS (2)
  1. DICLOFENAC (DICLOFENAC) [Suspect]
     Dosage: 100 MG X 1 DOSE, PO
     Route: 048
  2. ACENOCUMAROL (ACENOCOUMAROL) [Suspect]
     Indication: HYPERCOAGULATION
     Dosage: 1 MG DAILY

REACTIONS (2)
  - DRUG INTERACTION [None]
  - HYPERSENSITIVITY [None]
